FAERS Safety Report 11008195 (Version 1)
Quarter: 2015Q2

REPORT INFORMATION
  Report Type: Spontaneous
  Country: ES (occurrence: ES)
  Receive Date: 20150410
  Receipt Date: 20150410
  Transmission Date: 20150821
  Serious: Yes (Hospitalization)
  Sender: FDA-Public Use
  Company Number: ES-ACCORD-029837

PATIENT
  Age: 57 Year

DRUGS (4)
  1. CISPLATIN. [Suspect]
     Active Substance: CISPLATIN
     Indication: LYMPHOMA
     Dosage: DHAP REGIMEN
  2. CYTARABINE/CYTARABINE HYDROCHLORIDE/CYTARABINE OCFOSFATE [Suspect]
     Active Substance: CYTARABINE
     Indication: LYMPHOMA
     Dosage: DHAP REGIMEN.?STANDARD DOSE OF 4G/M^2.?3 G/M^2 /12H DURING DAYS 2 AND 3 OF CYCLE.
  3. DEXAMETHASONE. [Suspect]
     Active Substance: DEXAMETHASONE
     Indication: LYMPHOMA
     Dosage: DHAP REGIMEN
  4. METHOTREXATE [Suspect]
     Active Substance: METHOTREXATE
     Indication: LYMPHOMA

REACTIONS (3)
  - Off label use [Unknown]
  - Cerebellar syndrome [Recovered/Resolved with Sequelae]
  - Acute kidney injury [Recovered/Resolved with Sequelae]
